FAERS Safety Report 17795180 (Version 2)
Quarter: 2020Q3

REPORT INFORMATION
  Report Type: Spontaneous
  Country: US (occurrence: US)
  Receive Date: 20200515
  Receipt Date: 20200810
  Transmission Date: 20201102
  Serious: No
  Sender: FDA-Public Use
  Company Number: US-BAUSCH-BL-2020-013753

PATIENT
  Age: 82 Year
  Sex: Male

DRUGS (9)
  1. NEOMYCIN/POLYMYXIN B SULFATES BACITRACIN ZINC/HYDROCORTISONE OPHT OINT [Suspect]
     Active Substance: BACITRACIN ZINC\HYDROCORTISONE\NEOMYCIN SULFATE\POLYMYXIN B SULFATE
     Indication: EYE IRRITATION
     Dosage: 1 APPLICATION IN BOTH EYES EVERY 2 HOURS AS NEEDED
     Route: 047
     Dates: start: 20200504, end: 20200506
  2. NEOMYCIN/POLYMYXIN B SULFATES BACITRACIN ZINC/HYDROCORTISONE OPHT OINT [Suspect]
     Active Substance: BACITRACIN ZINC\HYDROCORTISONE\NEOMYCIN SULFATE\POLYMYXIN B SULFATE
     Indication: EYE PRURITUS
  3. NATURAL TEARS [Suspect]
     Active Substance: POLYVINYL ALCOHOL\POVIDONE
     Indication: EYE PRURITUS
  4. VISINE [Suspect]
     Active Substance: TETRAHYDROZOLINE HYDROCHLORIDE
     Indication: EYE PRURITUS
  5. NATURAL TEARS [Suspect]
     Active Substance: POLYVINYL ALCOHOL\POVIDONE
     Indication: EYE IRRITATION
     Dosage: AS NEEDED
     Route: 047
  6. VISINE [Suspect]
     Active Substance: TETRAHYDROZOLINE HYDROCHLORIDE
     Indication: EYE IRRITATION
     Dosage: AS NEEDED
     Route: 047
  7. NEOMYCIN/POLYMYXIN B SULFATES BACITRACIN ZINC/HYDROCORTISONE OPHT OINT [Suspect]
     Active Substance: BACITRACIN ZINC\HYDROCORTISONE\NEOMYCIN SULFATE\POLYMYXIN B SULFATE
     Indication: OCULAR HYPERAEMIA
  8. NATURAL TEARS [Suspect]
     Active Substance: POLYVINYL ALCOHOL\POVIDONE
     Indication: OCULAR HYPERAEMIA
  9. VISINE [Suspect]
     Active Substance: TETRAHYDROZOLINE HYDROCHLORIDE
     Indication: OCULAR HYPERAEMIA

REACTIONS (2)
  - Therapeutic product effect incomplete [Unknown]
  - Expired product administered [Unknown]

NARRATIVE: CASE EVENT DATE: 202005
